FAERS Safety Report 10038024 (Version 1)
Quarter: 2014Q1

REPORT INFORMATION
  Report Type: Spontaneous
  Country: US (occurrence: None)
  Receive Date: 20140306
  Receipt Date: 20140306
  Transmission Date: 20141002
  Serious: Yes (Hospitalization, Other)
  Sender: FDA-Public Use
  Company Number: 163-21880-12120766

PATIENT
  Age: 74 Year
  Sex: Female

DRUGS (6)
  1. REVLIMID (LENALIDOMIDE) (CAPSULES) [Suspect]
     Indication: PLASMA CELL MYELOMA
     Route: 048
     Dates: start: 200908
  2. GLIPIZIDE [Concomitant]
  3. METFORMIN [Concomitant]
  4. OMEPRAZOLE [Concomitant]
  5. IMODIUM (LOPERAMIDE) [Concomitant]
  6. HYDRATION [Concomitant]

REACTIONS (10)
  - Anaemia [None]
  - Dyspnoea [None]
  - Palpitations [None]
  - Thrombocytopenia [None]
  - Nausea [None]
  - Vomiting [None]
  - Anxiety [None]
  - Balance disorder [None]
  - Diarrhoea [None]
  - Dizziness [None]
